FAERS Safety Report 7797667-7 (Version None)
Quarter: 2011Q4

REPORT INFORMATION
  Report Type: 
  Country: None (occurrence: None)
  Receive Date: 20111005
  Receipt Date: 20110926
  Transmission Date: 20120403
  Serious: Yes (Hospitalization)
  Sender: FDA-Public Use
  Company Number: PHHY2011IN85626

PATIENT
  Age: 32 Year
  Sex: Female

DRUGS (5)
  1. METHYLERGOMETRINE MALEATE [Suspect]
     Dosage: 0.2 MG, UNK
     Route: 030
  2. NITROUS OXIDE [Concomitant]
  3. OXYTOCIN [Suspect]
     Dosage: 2 IU, UNK
     Route: 042
  4. HALOTHANE [Concomitant]
  5. MIDAZOLAM HCL [Concomitant]
     Dosage: 2 MG, UNK
     Route: 042

REACTIONS (2)
  - EMBOLISM VENOUS [None]
  - MATERNAL EXPOSURE DURING PREGNANCY [None]
